FAERS Safety Report 6528910-X (Version None)
Quarter: 2009Q4

REPORT INFORMATION
  Report Type: 
  Country: None (occurrence: None)
  Receive Date: 20091224
  Receipt Date: 20091211
  Transmission Date: 20100525
  Serious: Yes (Hospitalization)
  Sender: FDA-Public Use
  Company Number: AUR-APL-2009-01218

PATIENT
  Age: 75 Year
  Sex: Female

DRUGS (2)
  1. PAROXETINE [Suspect]
     Indication: DRUG USE FOR UNKNOWN INDICATION
     Dosage: UNK - UNK - UNK
     Dates: start: 20090513, end: 20090813
  2. LYRICA [Suspect]

REACTIONS (1)
  - PRESYNCOPE [None]
